FAERS Safety Report 4870891-9 (Version None)
Quarter: 2006Q1

REPORT INFORMATION
  Report Type: 
  Country: None (occurrence: None)
  Receive Date: 20060103
  Receipt Date: 20051017
  Transmission Date: 20060701
  Serious: Yes (Other)
  Sender: FDA-Public Use
  Company Number: JP-SANOFI-SYNTHELABO-F01200502142

PATIENT
  Age: 53 Year
  Sex: Male
  Weight: 47 kg

DRUGS (3)
  1. OXALIPLATIN [Suspect]
     Indication: COLON CANCER
     Route: 042
     Dates: start: 20050922, end: 20050922
  2. CALCIUM LEVOFOLINATE [Suspect]
     Route: 041
     Dates: start: 20050922, end: 20050923
  3. FLUOROURACIL [Suspect]
     Dosage: 500MG/BODY=340.1MG/M2 IN BOLUS THEN 750MG/BODY=510.2MG/M2 AS CONTINUOUS INFUSION DAYS 1 AND 2
     Route: 042
     Dates: start: 20050922, end: 20050923

REACTIONS (2)
  - DISEASE PROGRESSION [None]
  - GASTROINTESTINAL PERFORATION [None]
